FAERS Safety Report 18898558 (Version 2)
Quarter: 2021Q1

REPORT INFORMATION
  Report Type: Report from Study
  Country: TH (occurrence: TH)
  Receive Date: 20210216
  Receipt Date: 20210304
  Transmission Date: 20210420
  Serious: Yes (Hospitalization, Other)
  Sender: FDA-Public Use
  Company Number: TH-ROCHE-2628065

PATIENT
  Age: 81 Year
  Sex: Female
  Weight: 47 kg

DRUGS (47)
  1. ATEZOLIZUMAB. [Suspect]
     Active Substance: ATEZOLIZUMAB
     Indication: TRIPLE NEGATIVE BREAST CANCER
     Dosage: DATE OF MOST RECENT DOSE OF ATEZOLIZUMAB PRIOR TO SAE ONSET: 12/JUN/2020 AT 12:00?DATE OF MOST RECEN
     Route: 041
     Dates: start: 20200612
  2. SIMVASTATIN. [Concomitant]
     Active Substance: SIMVASTATIN
     Dosage: TO LOWER LIPID PRODUCTION.
     Route: 048
  3. PLASIL [Concomitant]
     Active Substance: METOCLOPRAMIDE HYDROCHLORIDE
     Indication: VOMITING
  4. CETIRIZINE [Concomitant]
     Active Substance: CETIRIZINE HYDROCHLORIDE
     Indication: HYPERSENSITIVITY
     Route: 048
     Dates: start: 20200612
  5. TRANAVAN [Concomitant]
     Route: 048
     Dates: start: 20200619
  6. MOLAX?M [Concomitant]
     Indication: NAUSEA
  7. MAGNESIUM SULFATE. [Concomitant]
     Active Substance: MAGNESIUM SULFATE
     Route: 042
     Dates: start: 20200622, end: 20200624
  8. LASIX [Concomitant]
     Active Substance: FUROSEMIDE
     Indication: OEDEMA
     Route: 058
     Dates: start: 20200623, end: 20200624
  9. SARAPIN [Concomitant]
     Active Substance: SARRACENIA PURPUREA
     Route: 048
     Dates: start: 20201111, end: 20201112
  10. HEXETIDINE [Concomitant]
     Active Substance: HEXETIDINE
     Route: 061
     Dates: start: 20201113, end: 20201113
  11. IPATASERTIB. [Suspect]
     Active Substance: IPATASERTIB
     Indication: TRIPLE NEGATIVE BREAST CANCER
     Dosage: DATE OF MOST RECENT DOSE OF IPATASERTIB PRIOR TO AE ONSET 15/JUN/2020?DATE OF MOST RECENT DOSE OF IP
     Route: 048
     Dates: start: 20200612
  12. PACLITAXEL. [Suspect]
     Active Substance: PACLITAXEL
     Indication: TRIPLE NEGATIVE BREAST CANCER
     Dosage: DATE OF MOST RECENT DOSE (80 MG/M2) OF PACLITAXEL PRIOR TO SAE ONSET: 12/JUN/2020 AT 13:15?DATE OF M
     Route: 042
     Dates: start: 20200612
  13. ATIVAN [Concomitant]
     Active Substance: LORAZEPAM
     Indication: NAUSEA
     Route: 048
     Dates: start: 20200612
  14. DEXAMETHASONE. [Concomitant]
     Active Substance: DEXAMETHASONE
     Dates: start: 20200716, end: 20200716
  15. VANCIN?S [Concomitant]
     Route: 042
     Dates: start: 20200623, end: 20200703
  16. FERROUS SULFATE. [Concomitant]
     Active Substance: FERROUS SULFATE
     Route: 048
     Dates: start: 20200723
  17. SODIUM CHLORIDE. [Concomitant]
     Active Substance: SODIUM CHLORIDE
     Route: 042
     Dates: start: 20201112, end: 20201112
  18. PLASIL [Concomitant]
     Active Substance: METOCLOPRAMIDE HYDROCHLORIDE
     Indication: NAUSEA
     Route: 048
     Dates: start: 20200612
  19. TRAMADOL. [Concomitant]
     Active Substance: TRAMADOL
     Indication: PAIN
     Route: 048
     Dates: start: 20200612
  20. LOPERAMIDE [Concomitant]
     Active Substance: LOPERAMIDE
     Indication: DIARRHOEA
     Route: 048
     Dates: start: 20200612
  21. DIPHENHYDRAMINE. [Concomitant]
     Active Substance: DIPHENHYDRAMINE
     Route: 048
     Dates: start: 20200710, end: 20200710
  22. ENPOTT [Concomitant]
     Indication: HYPERKALAEMIA
     Route: 048
     Dates: start: 20200622, end: 20200625
  23. ZINC OXIDE. [Concomitant]
     Active Substance: ZINC OXIDE
     Route: 061
     Dates: start: 20200623
  24. CEF?4 (THAILAND) [Concomitant]
     Dates: start: 20200621, end: 20200622
  25. OREDA R.O. [Concomitant]
     Route: 048
     Dates: start: 20201111, end: 20201113
  26. MOLAX?M [Concomitant]
     Indication: VOMITING
     Route: 048
     Dates: start: 20200619
  27. CEFIXIME. [Concomitant]
     Active Substance: CEFIXIME
     Indication: URINARY TRACT INFECTION
     Route: 042
     Dates: start: 20200622, end: 20200623
  28. MAPENEM [Concomitant]
     Route: 042
     Dates: start: 20200623, end: 20200702
  29. INVANZ [Concomitant]
     Active Substance: ERTAPENEM SODIUM
     Route: 042
     Dates: start: 20200629, end: 20200706
  30. CHLORPHENAMINE [Concomitant]
     Active Substance: CHLORPHENIRAMINE MALEATE
  31. AMLODIPINE [Concomitant]
     Active Substance: AMLODIPINE BESYLATE
     Indication: HYPOTENSION
     Route: 048
  32. POTASSIUM CHLORIDE ER [Concomitant]
     Active Substance: POTASSIUM CHLORIDE
     Route: 048
     Dates: start: 20200622, end: 20200627
  33. SENOKOT [Concomitant]
     Active Substance: SENNOSIDES
     Indication: CONSTIPATION
     Route: 048
     Dates: start: 20200612
  34. LOPERAMIDE [Concomitant]
     Active Substance: LOPERAMIDE
     Route: 048
     Dates: start: 20200710
  35. ONDANSETRON [Concomitant]
     Active Substance: ONDANSETRON
     Indication: NAUSEA
     Route: 042
     Dates: start: 20200612
  36. LACTATED RINGERS SOLUTION [Concomitant]
     Active Substance: CALCIUM CHLORIDE\POTASSIUM CHLORIDE\SODIUM CHLORIDE\SODIUM LACTATE
     Route: 042
     Dates: start: 20201111, end: 20201111
  37. PREDNISOLONE. [Concomitant]
     Active Substance: PREDNISOLONE
     Indication: RASH
     Route: 048
     Dates: start: 20200612, end: 20200614
  38. DEXAMETHASONE. [Concomitant]
     Active Substance: DEXAMETHASONE
     Route: 042
     Dates: start: 20200612
  39. ONDANSETRON [Concomitant]
     Active Substance: ONDANSETRON
     Route: 042
     Dates: start: 20200710, end: 20200710
  40. DIPHENHYDRAMINE. [Concomitant]
     Active Substance: DIPHENHYDRAMINE
     Route: 048
     Dates: start: 20200612
  41. CEFTAZIDIME. [Concomitant]
     Active Substance: CEFTAZIDIME
     Route: 042
     Dates: start: 20200621, end: 20200622
  42. ALBUMIN [Concomitant]
     Active Substance: ALBUMIN HUMAN
     Indication: HYPOVOLAEMIA
     Route: 042
     Dates: start: 20200624, end: 20200624
  43. METOCLOPRAMIDE. [Concomitant]
     Active Substance: METOCLOPRAMIDE
     Route: 058
     Dates: start: 20201111, end: 20201113
  44. CETIRIZINE [Concomitant]
     Active Substance: CETIRIZINE HYDROCHLORIDE
     Route: 048
     Dates: start: 20200710
  45. AMLOPINE [Concomitant]
     Active Substance: AMLODIPINE BESYLATE
     Indication: BLOOD PRESSURE MEASUREMENT
     Route: 048
     Dates: start: 20200621, end: 20200703
  46. BERODUAL [Concomitant]
     Active Substance: FENOTEROL HYDROBROMIDE\IPRATROPIUM BROMIDE
  47. POTASSIUM CHLORIDE. [Concomitant]
     Active Substance: POTASSIUM CHLORIDE
     Indication: ELECTROLYTE IMBALANCE
     Route: 042
     Dates: start: 20201111, end: 20201111

REACTIONS (8)
  - Acute kidney injury [Recovered/Resolved]
  - Hypersensitivity [Recovered/Resolved]
  - Clostridium difficile colitis [Recovered/Resolved]
  - Diarrhoea [Recovered/Resolved]
  - Diarrhoea [Recovered/Resolved]
  - Diarrhoea [Recovered/Resolved]
  - Pyelonephritis [Recovered/Resolved]
  - Hyperglycaemia [Recovered/Resolved]

NARRATIVE: CASE EVENT DATE: 20200616
